FAERS Safety Report 12680004 (Version 1)
Quarter: 2016Q3

REPORT INFORMATION
  Report Type: Spontaneous
  Country: US (occurrence: None)
  Receive Date: 20160823
  Receipt Date: 20160823
  Transmission Date: 20161109
  Serious: Yes (Hospitalization)
  Sender: FDA-Public Use
  Company Number: None

PATIENT
  Age: 78 Year
  Sex: Female

DRUGS (1)
  1. IMATINIB 400 MG [Suspect]
     Active Substance: IMATINIB
     Indication: GASTRIC CANCER
     Route: 048
     Dates: start: 20120530

REACTIONS (2)
  - Cardiac disorder [None]
  - Drug dose omission [None]

NARRATIVE: CASE EVENT DATE: 201607
